FAERS Safety Report 13130692 (Version 1)
Quarter: 2017Q1

REPORT INFORMATION
  Report Type: Spontaneous
  Country: US (occurrence: US)
  Receive Date: 20170118
  Receipt Date: 20170118
  Transmission Date: 20170428
  Serious: Yes (Hospitalization)
  Sender: FDA-Public Use
  Company Number: None

PATIENT
  Age: 73 Year
  Sex: Male
  Weight: 84.1 kg

DRUGS (2)
  1. HALOPERIDOL. [Suspect]
     Active Substance: HALOPERIDOL
     Indication: PARANOIA
     Route: 048
     Dates: start: 20161214, end: 20170106
  2. HALOPERIDOL. [Suspect]
     Active Substance: HALOPERIDOL
     Indication: DELUSION
     Route: 048
     Dates: start: 20161214, end: 20170106

REACTIONS (4)
  - Asthenia [None]
  - Depressed level of consciousness [None]
  - Tremor [None]
  - Reduced facial expression [None]

NARRATIVE: CASE EVENT DATE: 20170106
